FAERS Safety Report 6237078-9 (Version None)
Quarter: 2009Q2

REPORT INFORMATION
  Report Type: 
  Country: None (occurrence: None)
  Receive Date: 20090619
  Receipt Date: 20090326
  Transmission Date: 20091009
  Serious: No
  Sender: FDA-Public Use
  Company Number: US-ASTRAZENECA-2009UW07877

PATIENT
  Sex: Female
  Weight: 58.1 kg

DRUGS (5)
  1. SYMBICORT [Suspect]
     Indication: EMPHYSEMA
     Dosage: 80/4.5UG TWO PUFFS
     Route: 055
     Dates: start: 20081101
  2. TRICOR [Concomitant]
  3. PROTONIX [Concomitant]
  4. OSCAL [Concomitant]
  5. ACTONEL [Concomitant]

REACTIONS (4)
  - DRY SKIN [None]
  - ERYTHEMA [None]
  - SKIN DISORDER [None]
  - SKIN EXFOLIATION [None]
